FAERS Safety Report 9249670 (Version 5)
Quarter: 2013Q3

REPORT INFORMATION
  Report Type: Spontaneous
  Country: US (occurrence: US)
  Receive Date: 20130423
  Receipt Date: 20130702
  Transmission Date: 20140515
  Serious: Yes (Hospitalization)
  Sender: FDA-Public Use
  Company Number: US-BAXTER-2013BAX014747

PATIENT
  Age: 86 Year
  Sex: Female

DRUGS (6)
  1. DIANEAL LOW CALCIUM [Suspect]
     Indication: PERITONEAL DIALYSIS
     Route: 033
     Dates: end: 20130407
  2. DIANEAL LOW CALCIUM [Suspect]
     Route: 033
     Dates: end: 20130407
  3. DIANEAL LOW CALCIUM [Suspect]
     Route: 033
     Dates: start: 20130417
  4. DIANEAL LOW CALCIUM [Suspect]
     Route: 033
     Dates: start: 20130414
  5. DIANEAL LOW CALCIUM [Suspect]
     Indication: PERITONEAL DIALYSIS
     Route: 033
  6. EXTRANEAL [Suspect]
     Indication: PERITONEAL DIALYSIS
     Route: 033

REACTIONS (4)
  - Blood urea increased [Recovered/Resolved]
  - Azotaemia [Recovered/Resolved]
  - Peritonitis [Recovering/Resolving]
  - Peritonitis [Recovering/Resolving]
